FAERS Safety Report 9054505 (Version 1)
Quarter: 2013Q1

REPORT INFORMATION
  Report Type: Spontaneous
  Country: US (occurrence: US)
  Receive Date: 20130208
  Receipt Date: 20130208
  Transmission Date: 20140127
  Serious: No
  Sender: FDA-Public Use
  Company Number: US-GLAXOSMITHKLINE-A0998178A

PATIENT
  Age: 19 Year
  Sex: Female

DRUGS (3)
  1. PAROXETINE [Suspect]
     Indication: GENERALISED ANXIETY DISORDER
     Dosage: 20MG UNKNOWN
     Route: 048
  2. WELLBUTRIN XL [Concomitant]
     Dosage: 300MG UNKNOWN
     Route: 048
  3. PRILOSEC [Concomitant]
     Route: 065

REACTIONS (2)
  - Arthralgia [Not Recovered/Not Resolved]
  - Local swelling [Not Recovered/Not Resolved]
